FAERS Safety Report 4832286-3 (Version None)
Quarter: 2005Q4

REPORT INFORMATION
  Report Type: 
  Country: None (occurrence: None)
  Receive Date: 20051116
  Receipt Date: 20051116
  Transmission Date: 20060501
  Serious: Yes (Disabling)
  Sender: FDA-Public Use
  Company Number: None

PATIENT
  Age: 72 Year
  Sex: Female
  Weight: 80.7403 kg

DRUGS (1)
  1. BOTOX [Suspect]
     Indication: MUSCLE SPASMS
     Dosage: NI
     Dates: start: 20020517

REACTIONS (5)
  - DROOLING [None]
  - DRY EYE [None]
  - FACIAL PALSY [None]
  - LIP DISORDER [None]
  - SPEECH DISORDER [None]
